FAERS Safety Report 9701491 (Version 1)
Quarter: 2013Q4

REPORT INFORMATION
  Report Type: Report from Study
  Country: US (occurrence: US)
  Receive Date: 20131121
  Receipt Date: 20131121
  Transmission Date: 20140711
  Serious: No
  Sender: FDA-Public Use
  Company Number: US-VERTEX PHARMACEUTICALS INC-2013-011074

PATIENT
  Sex: Male

DRUGS (1)
  1. VX-950 (TELAPREVIR) [Suspect]
     Indication: HEPATITIS C

REACTIONS (2)
  - Swollen tongue [Unknown]
  - Vital functions abnormal [Unknown]
